FAERS Safety Report 9765168 (Version 1)
Quarter: 2013Q4

REPORT INFORMATION
  Report Type: Spontaneous
  Country: US (occurrence: US)
  Receive Date: 20131217
  Receipt Date: 20131217
  Transmission Date: 20140711
  Serious: No
  Sender: FDA-Public Use
  Company Number: US-GLAXOSMITHKLINE-A1000757A

PATIENT
  Age: 69 Year
  Sex: Female

DRUGS (13)
  1. VOTRIENT [Suspect]
     Indication: OVARIAN CANCER
     Dosage: 800MG PER DAY
     Route: 048
     Dates: start: 201208
  2. FELODIPINE [Concomitant]
  3. COREG [Concomitant]
  4. PRILOSEC [Concomitant]
  5. MAGNESIUM SULFATE [Concomitant]
  6. PRAVASTATIN [Concomitant]
  7. MULTIVITAMIN [Concomitant]
  8. VITAMIN D [Concomitant]
  9. HYDROMORPHONE [Concomitant]
  10. MORPHINE [Concomitant]
  11. LORAZEPAM [Concomitant]
  12. ADVIL [Concomitant]
  13. TYLENOL [Concomitant]

REACTIONS (2)
  - Fatigue [Not Recovered/Not Resolved]
  - Nausea [Unknown]
